FAERS Safety Report 9722359 (Version 3)
Quarter: 2014Q1

REPORT INFORMATION
  Report Type: Spontaneous
  Country: BE (occurrence: BE)
  Receive Date: 20131202
  Receipt Date: 20140116
  Transmission Date: 20141002
  Serious: Yes (Death, Hospitalization, Other)
  Sender: FDA-Public Use
  Company Number: BE-JNJFOC-20131116852

PATIENT
  Age: 87 Year
  Sex: Female

DRUGS (11)
  1. XARELTO [Suspect]
     Indication: EMBOLISM VENOUS
     Route: 048
     Dates: start: 20130919, end: 20131011
  2. XARELTO [Suspect]
     Indication: CEREBROVASCULAR ACCIDENT
     Route: 048
     Dates: start: 20130919, end: 20131011
  3. XARELTO [Suspect]
     Indication: PULMONARY EMBOLISM
     Route: 048
     Dates: start: 20130919, end: 20131011
  4. XARELTO [Suspect]
     Indication: ATRIAL FIBRILLATION
     Route: 048
     Dates: start: 20130919, end: 20131011
  5. PROPYL-THIOURACIL [Concomitant]
     Route: 065
  6. GLUCOPHAGE [Concomitant]
     Indication: DIABETES MELLITUS
     Route: 065
     Dates: start: 2006
  7. JANUVIA [Concomitant]
     Indication: DIABETES MELLITUS
     Route: 065
     Dates: start: 2012
  8. EMCONCOR [Concomitant]
     Route: 065
     Dates: start: 2010
  9. LASIX [Concomitant]
     Route: 065
     Dates: start: 2013
  10. SPIRONOLACTONE [Concomitant]
     Route: 065
     Dates: start: 2013
  11. CORUNO [Concomitant]
     Route: 065

REACTIONS (15)
  - Ventricular arrhythmia [Fatal]
  - Death [Fatal]
  - Vomiting [Unknown]
  - Cardiac failure [Unknown]
  - Renal failure acute [Unknown]
  - Liver disorder [Unknown]
  - General physical health deterioration [Unknown]
  - Feeling abnormal [Unknown]
  - Dyspnoea exertional [Unknown]
  - Constipation [Unknown]
  - Decreased appetite [Unknown]
  - Urinary incontinence [Unknown]
  - Gait disturbance [Unknown]
  - Hyperlactacidaemia [Unknown]
  - Influenza [Unknown]
